FAERS Safety Report 13500576 (Version 1)
Quarter: 2017Q2

REPORT INFORMATION
  Report Type: Spontaneous
  Country: AU (occurrence: AU)
  Receive Date: 20170501
  Receipt Date: 20170501
  Transmission Date: 20170830
  Serious: Yes (Hospitalization, Other)
  Sender: FDA-Public Use
  Company Number: AU-APOTEX-2017AP011431

PATIENT
  Age: 38 Year
  Sex: Female

DRUGS (3)
  1. APO-DESVENLAFAXINE MR [Suspect]
     Active Substance: DESVENLAFAXINE
     Indication: PRODUCT USED FOR UNKNOWN INDICATION
     Dosage: 2600 MG, UNK
     Route: 048
  2. APOHEALTH IBUPROFEN [Suspect]
     Active Substance: IBUPROFEN
     Indication: PRODUCT USED FOR UNKNOWN INDICATION
     Route: 048
  3. APO-QUETIAPINE [Suspect]
     Active Substance: QUETIAPINE
     Indication: PRODUCT USED FOR UNKNOWN INDICATION
     Dosage: 16800 MG, UNK
     Route: 048

REACTIONS (3)
  - Coma scale abnormal [Unknown]
  - Overdose [Unknown]
  - Seizure [Unknown]
